FAERS Safety Report 15501782 (Version 1)
Quarter: 2018Q4

REPORT INFORMATION
  Report Type: Spontaneous
  Country: US (occurrence: US)
  Receive Date: 20181015
  Receipt Date: 20181015
  Transmission Date: 20190205
  Serious: No
  Sender: FDA-Public Use
  Company Number: US-AMGEN-USASP2018116245

PATIENT
  Age: 76 Year
  Sex: Female
  Weight: 49.89 kg

DRUGS (3)
  1. FISH OIL [Concomitant]
     Active Substance: FISH OIL
     Dosage: UNK
  2. PROCRIT [Suspect]
     Active Substance: ERYTHROPOIETIN
     Indication: NEPHROGENIC ANAEMIA
     Dosage: UNK (TOOK FOR ONE MONTH)
     Route: 065
     Dates: start: 2016, end: 2016
  3. PROCRIT [Suspect]
     Active Substance: ERYTHROPOIETIN
     Dosage: UNK (TOOK IT 3 OR 4 TIMES IN ONE YEAR)
     Route: 065
     Dates: start: 2017

REACTIONS (1)
  - Anaemia [Not Recovered/Not Resolved]

NARRATIVE: CASE EVENT DATE: 2018
